FAERS Safety Report 8160465-9 (Version None)
Quarter: 2012Q1

REPORT INFORMATION
  Report Type: 
  Country: None (occurrence: None)
  Receive Date: 20120223
  Receipt Date: 20120216
  Transmission Date: 20120608
  Serious: No
  Sender: FDA-Public Use
  Company Number: US-BAYER-2012-016639

PATIENT
  Age: 73 Year
  Sex: Female
  Weight: 67 kg

DRUGS (4)
  1. ASPIRIN [Suspect]
  2. CITRACAL [Concomitant]
  3. CARDIZEM [Concomitant]
  4. FISH OIL [Concomitant]

REACTIONS (1)
  - URTICARIA [None]
